FAERS Safety Report 4922503-3 (Version None)
Quarter: 2006Q1

REPORT INFORMATION
  Report Type: 
  Country: None (occurrence: None)
  Receive Date: 20060224
  Receipt Date: 20050607
  Transmission Date: 20060701
  Serious: Yes (Hospitalization)
  Sender: FDA-Public Use
  Company Number: BR-ROCHE-407213

PATIENT
  Sex: Female
  Weight: 2.7 kg

DRUGS (1)
  1. ROACUTAN [Suspect]
     Indication: ACNE
     Dosage: STRENGTH REPORTED AS 10/20 MG.
     Dates: start: 20041015, end: 20050415

REACTIONS (5)
  - ACUTE RESPIRATORY FAILURE [None]
  - NEONATAL ASPIRATION [None]
  - NEONATAL DISORDER [None]
  - PNEUMONITIS CHEMICAL [None]
  - TRANSMISSION OF DRUG VIA SEMEN [None]
